FAERS Safety Report 9983693 (Version 5)
Quarter: 2014Q2

REPORT INFORMATION
  Report Type: Spontaneous
  Country: US (occurrence: US)
  Receive Date: 20140307
  Receipt Date: 20140630
  Transmission Date: 20141212
  Serious: Yes (Death, Hospitalization, Other)
  Sender: FDA-Public Use
  Company Number: US-BAXTER-2014BAX011385

PATIENT
  Age: 75 Year
  Sex: Male

DRUGS (1)
  1. DIANEAL LOW CALCIUM [Suspect]
     Indication: PERITONEAL DIALYSIS
     Route: 033
     Dates: start: 2013

REACTIONS (6)
  - Myocardial infarction [Fatal]
  - Cardiac valve replacement complication [Fatal]
  - Cardiac disorder [Recovering/Resolving]
  - Condition aggravated [Unknown]
  - Cardiac arrest [Unknown]
  - Unresponsive to stimuli [Unknown]
